FAERS Safety Report 5940876-X (Version None)
Quarter: 2008Q4

REPORT INFORMATION
  Report Type: 
  Country: None (occurrence: None)
  Receive Date: 20081104
  Receipt Date: 20081030
  Transmission Date: 20090506
  Serious: Yes (Hospitalization)
  Sender: FDA-Public Use
  Company Number: JP-WYE-H06628208

PATIENT
  Age: 75 Year
  Sex: Female

DRUGS (2)
  1. TAZOCIN [Suspect]
     Indication: INFECTION PROPHYLAXIS
     Route: 041
     Dates: start: 20081024, end: 20081027
  2. COTRIM [Concomitant]
     Dosage: UNKNOWN
     Route: 048
     Dates: end: 20081027

REACTIONS (2)
  - LIVER DISORDER [None]
  - RASH [None]
